FAERS Safety Report 16647587 (Version 2)
Quarter: 2020Q1

REPORT INFORMATION
  Report Type: Spontaneous
  Country: US (occurrence: US)
  Receive Date: 20190730
  Receipt Date: 20200311
  Transmission Date: 20200409
  Serious: Yes (Life-Threatening, Other)
  Sender: FDA-Public Use
  Company Number: US-PFIZER INC-2019315957

PATIENT
  Age: 30 Year
  Sex: Male

DRUGS (2)
  1. FENTANYL CITRATE. [Suspect]
     Active Substance: FENTANYL CITRATE
     Dosage: UNK
  2. HEROIN [Interacting]
     Active Substance: DIAMORPHINE
     Dosage: UNK

REACTIONS (3)
  - Respiratory depression [Unknown]
  - Drug interaction [Unknown]
  - Accidental overdose [Unknown]
